FAERS Safety Report 21754565 (Version 1)
Quarter: 2022Q4

REPORT INFORMATION
  Report Type: Spontaneous
  Country: US (occurrence: US)
  Receive Date: 20221220
  Receipt Date: 20221220
  Transmission Date: 20230113
  Serious: Yes (Hospitalization, Other)
  Sender: FDA-Public Use
  Company Number: US-PFIZER INC-202201374743

PATIENT
  Age: 45 Year
  Sex: Female
  Weight: 70 kg

DRUGS (1)
  1. PAXLOVID [Suspect]
     Active Substance: NIRMATRELVIR\RITONAVIR
     Indication: COVID-19 treatment
     Dosage: UNK

REACTIONS (7)
  - Acute kidney injury [Unknown]
  - Lactic acidosis [Unknown]
  - Confusional state [Unknown]
  - Mental status changes [Unknown]
  - Aggression [Unknown]
  - Shock [Recovered/Resolved]
  - Hypotension [Unknown]
